FAERS Safety Report 20696323 (Version 4)
Quarter: 2024Q1

REPORT INFORMATION
  Report Type: Spontaneous
  Country: US (occurrence: US)
  Receive Date: 20220411
  Receipt Date: 20240315
  Transmission Date: 20240410
  Serious: No
  Sender: FDA-Public Use
  Company Number: US-PFIZER INC-202101864167

PATIENT
  Age: 76 Year
  Sex: Female

DRUGS (1)
  1. IBRANCE [Suspect]
     Active Substance: PALBOCICLIB
     Dosage: 1 Q DAY DAYS 1-21 EVERY 28 DAYS
     Route: 048

REACTIONS (2)
  - Tumour marker increased [Unknown]
  - Treatment noncompliance [Unknown]
